FAERS Safety Report 7225791-6 (Version None)
Quarter: 2011Q1

REPORT INFORMATION
  Report Type: 
  Country: None (occurrence: None)
  Receive Date: 20110110
  Receipt Date: 20110110
  Transmission Date: 20110831
  Serious: Yes (Other)
  Sender: FDA-Public Use
  Company Number: None

PATIENT
  Age: 76 Year
  Sex: Female
  Weight: 68.0396 kg

DRUGS (2)
  1. CRESTOR [Suspect]
     Dates: start: 20091001, end: 20100801
  2. LIPITOR [Suspect]
     Indication: BLOOD CHOLESTEROL INCREASED
     Dates: start: 19960103, end: 20091001

REACTIONS (2)
  - MUSCLE SPASMS [None]
  - MYALGIA [None]
